FAERS Safety Report 16437109 (Version 8)
Quarter: 2020Q2

REPORT INFORMATION
  Report Type: Report from Study
  Country: BR (occurrence: BR)
  Receive Date: 20190615
  Receipt Date: 20200610
  Transmission Date: 20200713
  Serious: Yes (Hospitalization, Other)
  Sender: FDA-Public Use
  Company Number: PHHY2019BR133140

PATIENT
  Age: 44 Year
  Sex: Female
  Weight: 60 kg

DRUGS (9)
  1. LETROZOLE. [Suspect]
     Active Substance: LETROZOLE
     Indication: BREAST CANCER
     Dosage: UNK
     Route: 048
     Dates: start: 20190329
  2. ZOLADEX [Concomitant]
     Active Substance: GOSERELIN ACETATE
     Indication: MENOPAUSE
     Dosage: UNK
     Route: 065
     Dates: start: 20190329
  3. KISQALI [Suspect]
     Active Substance: RIBOCICLIB
     Indication: BREAST CANCER METASTATIC
     Dosage: 3 DF, QD (3 TABLET OF 200 MG, TOTAL: 600 MG)
     Route: 048
     Dates: start: 20190507
  4. KISQALI [Suspect]
     Active Substance: RIBOCICLIB
     Dosage: UNK
     Route: 065
  5. KISQALI [Suspect]
     Active Substance: RIBOCICLIB
     Dosage: UNK, EVERY 21 DAYS
     Route: 065
  6. LETROZOLE. [Suspect]
     Active Substance: LETROZOLE
     Dosage: UNK
     Route: 065
  7. TAMOXIFEN [Suspect]
     Active Substance: TAMOXIFEN
     Indication: BREAST CANCER
     Dosage: UNK
     Route: 065
     Dates: start: 201511, end: 201902
  8. KISQALI [Suspect]
     Active Substance: RIBOCICLIB
     Dosage: UNK, (AT NIGHT)
     Route: 048
     Dates: start: 201905
  9. LETROZOLE. [Suspect]
     Active Substance: LETROZOLE
     Dosage: UNK
     Route: 065

REACTIONS (62)
  - White blood cell count decreased [Recovered/Resolved]
  - Musculoskeletal stiffness [Unknown]
  - Eating disorder [Unknown]
  - Feeling abnormal [Unknown]
  - Fatigue [Recovered/Resolved]
  - Muscle atrophy [Unknown]
  - Musculoskeletal discomfort [Unknown]
  - Micturition urgency [Unknown]
  - Metastases to bone [Unknown]
  - Muscle spasms [Unknown]
  - Speech disorder [Recovering/Resolving]
  - Alopecia [Not Recovered/Not Resolved]
  - Nausea [Recovered/Resolved]
  - Urinary tract infection [Recovering/Resolving]
  - Nausea [Unknown]
  - Nervousness [Unknown]
  - Paraesthesia [Unknown]
  - Depression [Unknown]
  - Urine output decreased [Unknown]
  - Abdominal injury [Unknown]
  - Asthenia [Recovering/Resolving]
  - Pyrexia [Recovered/Resolved]
  - Upper limb fracture [Unknown]
  - Bone disorder [Recovering/Resolving]
  - Bone lesion [Unknown]
  - Tetany [Unknown]
  - Decreased immune responsiveness [Recovering/Resolving]
  - Agitation [Unknown]
  - Fatigue [Not Recovered/Not Resolved]
  - Fall [Unknown]
  - Dysphonia [Unknown]
  - Balance disorder [Unknown]
  - Candida infection [Recovering/Resolving]
  - Purulent discharge [Recovering/Resolving]
  - Bone fissure [Unknown]
  - Optic nerve injury [Unknown]
  - Metastases to central nervous system [Unknown]
  - Metastases to lung [Unknown]
  - Tremor [Recovering/Resolving]
  - Anger [Unknown]
  - Depressed mood [Unknown]
  - Poor quality sleep [Unknown]
  - Pain in extremity [Unknown]
  - Spinal fracture [Recovering/Resolving]
  - Metastases to meninges [Unknown]
  - Therapy non-responder [Unknown]
  - Muscle tightness [Unknown]
  - Blood potassium decreased [Unknown]
  - Nervous system disorder [Recovering/Resolving]
  - Application site inflammation [Unknown]
  - Brain neoplasm [Unknown]
  - Fracture [Unknown]
  - Decreased appetite [Unknown]
  - Application site reaction [Unknown]
  - Musculoskeletal pain [Unknown]
  - Abdominal mass [Recovering/Resolving]
  - Abnormal behaviour [Not Recovered/Not Resolved]
  - Pain [Unknown]
  - Self esteem decreased [Unknown]
  - Blood electrolytes decreased [Unknown]
  - Inflammation [Recovering/Resolving]
  - Product dose omission [Unknown]

NARRATIVE: CASE EVENT DATE: 201903
